FAERS Safety Report 6842977-0 (Version None)
Quarter: 2010Q3

REPORT INFORMATION
  Report Type: 
  Country: None (occurrence: None)
  Receive Date: 20100714
  Receipt Date: 20070808
  Transmission Date: 20110219
  Serious: No
  Sender: FDA-Public Use
  Company Number: US-PFIZER INC-2007066879

PATIENT
  Sex: Female
  Weight: 64.545 kg

DRUGS (4)
  1. CHANTIX [Suspect]
     Indication: SMOKING CESSATION THERAPY
     Dates: start: 20070101
  2. VERAPAMIL [Concomitant]
  3. PRAVASTATIN [Concomitant]
  4. HYDROCHLOROTHIAZIDE [Concomitant]

REACTIONS (3)
  - NAUSEA [None]
  - POOR QUALITY SLEEP [None]
  - WEIGHT INCREASED [None]
